APPROVED DRUG PRODUCT: PALONOSETRON HYDROCHLORIDE
Active Ingredient: PALONOSETRON HYDROCHLORIDE
Strength: EQ 0.075MG BASE/1.5ML (EQ 0.05MG BASE/ML)
Dosage Form/Route: INJECTABLE;INTRAVENOUS
Application: A205648 | Product #002
Applicant: QILU PHARMACEUTICAL HAINAN CO LTD
Approved: Sep 19, 2018 | RLD: No | RS: No | Type: DISCN